FAERS Safety Report 13411740 (Version 2)
Quarter: 2017Q4

REPORT INFORMATION
  Report Type: Spontaneous
  Country: US (occurrence: US)
  Receive Date: 20170406
  Receipt Date: 20171123
  Transmission Date: 20180320
  Serious: No
  Sender: FDA-Public Use
  Company Number: US-JNJFOC-20170303421

PATIENT
  Sex: Male

DRUGS (22)
  1. RISPERIDONE. [Suspect]
     Active Substance: RISPERIDONE
     Indication: ATTENTION DEFICIT/HYPERACTIVITY DISORDER
     Route: 065
     Dates: start: 20110930, end: 20150511
  2. RISPERDAL [Suspect]
     Active Substance: RISPERIDONE
     Indication: SEVERE MENTAL RETARDATION
     Route: 048
     Dates: start: 20070501, end: 20070724
  3. RISPERDAL [Suspect]
     Active Substance: RISPERIDONE
     Indication: DEVELOPMENTAL DELAY
     Dosage: 0.5 MG IN THE MORNING AND 1 MG IN THE NIGHT
     Route: 048
     Dates: start: 20080103
  4. RISPERDAL [Suspect]
     Active Substance: RISPERIDONE
     Indication: ATTENTION DEFICIT/HYPERACTIVITY DISORDER
     Dosage: 0.5 MG IN THE MORNING AND 1 MG IN THE NIGHT
     Route: 048
     Dates: start: 20080103
  5. RISPERDAL [Suspect]
     Active Substance: RISPERIDONE
     Indication: ATTENTION DEFICIT/HYPERACTIVITY DISORDER
     Route: 048
     Dates: start: 20070501, end: 20070724
  6. RISPERDAL [Suspect]
     Active Substance: RISPERIDONE
     Indication: ATTENTION DEFICIT/HYPERACTIVITY DISORDER
     Route: 048
     Dates: start: 20040326, end: 20110523
  7. RISPERIDONE. [Suspect]
     Active Substance: RISPERIDONE
     Indication: DEVELOPMENTAL DELAY
     Route: 048
     Dates: start: 20130205, end: 20160103
  8. RISPERDAL [Suspect]
     Active Substance: RISPERIDONE
     Indication: SEVERE MENTAL RETARDATION
     Dosage: 0.5 MG IN THE MORNING, AND NOON AND 1 MG AT NIGHT
     Route: 048
     Dates: start: 20090730, end: 20110922
  9. RISPERIDONE. [Suspect]
     Active Substance: RISPERIDONE
     Indication: DEVELOPMENTAL DELAY
     Route: 065
     Dates: start: 20110930, end: 20150511
  10. RISPERDAL [Suspect]
     Active Substance: RISPERIDONE
     Indication: DEVELOPMENTAL DELAY
     Route: 048
     Dates: start: 20070501, end: 20070724
  11. RISPERDAL [Suspect]
     Active Substance: RISPERIDONE
     Indication: ATTENTION DEFICIT/HYPERACTIVITY DISORDER
     Route: 048
     Dates: start: 2004, end: 2016
  12. RISPERIDONE. [Suspect]
     Active Substance: RISPERIDONE
     Indication: SEVERE MENTAL RETARDATION
     Route: 048
     Dates: start: 20130205, end: 20160103
  13. RISPERIDONE. [Suspect]
     Active Substance: RISPERIDONE
     Indication: PRODUCT USED FOR UNKNOWN INDICATION
     Route: 048
  14. RISPERDAL [Suspect]
     Active Substance: RISPERIDONE
     Indication: SEVERE MENTAL RETARDATION
     Route: 048
     Dates: start: 2004, end: 2016
  15. RISPERDAL [Suspect]
     Active Substance: RISPERIDONE
     Indication: SEVERE MENTAL RETARDATION
     Dosage: 0.5 MG IN THE MORNING AND 1 MG IN THE NIGHT
     Route: 048
     Dates: start: 20080103
  16. RISPERDAL [Suspect]
     Active Substance: RISPERIDONE
     Indication: DEVELOPMENTAL DELAY
     Dosage: 0.5 MG IN THE MORNING, AND NOON AND 1 MG AT NIGHT
     Route: 048
     Dates: start: 20090730, end: 20110922
  17. RISPERDAL [Suspect]
     Active Substance: RISPERIDONE
     Indication: SEVERE MENTAL RETARDATION
     Route: 048
     Dates: start: 20040326, end: 20110523
  18. RISPERIDONE. [Suspect]
     Active Substance: RISPERIDONE
     Indication: ATTENTION DEFICIT/HYPERACTIVITY DISORDER
     Route: 048
     Dates: start: 20130205, end: 20160103
  19. RISPERIDONE. [Suspect]
     Active Substance: RISPERIDONE
     Indication: SEVERE MENTAL RETARDATION
     Route: 065
     Dates: start: 20110930, end: 20150511
  20. RISPERDAL [Suspect]
     Active Substance: RISPERIDONE
     Indication: DEVELOPMENTAL DELAY
     Route: 048
     Dates: start: 2004, end: 2016
  21. RISPERDAL [Suspect]
     Active Substance: RISPERIDONE
     Indication: ATTENTION DEFICIT/HYPERACTIVITY DISORDER
     Dosage: 0.5 MG IN THE MORNING, AND NOON AND 1 MG AT NIGHT
     Route: 048
     Dates: start: 20090730, end: 20110922
  22. RISPERDAL [Suspect]
     Active Substance: RISPERIDONE
     Indication: DEVELOPMENTAL DELAY
     Route: 048
     Dates: start: 20040326, end: 20110523

REACTIONS (4)
  - Emotional disorder [Unknown]
  - Off label use [Unknown]
  - Gynaecomastia [Unknown]
  - Product use in unapproved indication [Unknown]

NARRATIVE: CASE EVENT DATE: 2004
